FAERS Safety Report 6119572-4 (Version None)
Quarter: 2009Q1

REPORT INFORMATION
  Report Type: 
  Country: None (occurrence: None)
  Receive Date: 20090316
  Receipt Date: 20090312
  Transmission Date: 20090719
  Serious: Yes (Hospitalization, Other)
  Sender: FDA-Public Use
  Company Number: B0564748A

PATIENT
  Age: 67 Year
  Sex: Male

DRUGS (8)
  1. MELPHALAN [Suspect]
     Indication: MULTIPLE MYELOMA
     Dosage: .14MGK PER DAY
     Dates: start: 20080701
  2. PREDNISONE [Suspect]
     Indication: MULTIPLE MYELOMA
     Dosage: 2MGK PER DAY
     Dates: start: 20080701
  3. BLINDED TRIAL MEDICATION [Suspect]
     Indication: MULTIPLE MYELOMA
     Dosage: 7.5MG PER DAY
     Route: 048
     Dates: start: 20080701
  4. ALLOPURINOL [Concomitant]
  5. OXYCONTIN [Concomitant]
  6. PANTOPRAZOLE SODIUM [Concomitant]
     Dosage: 40MG PER DAY
  7. LISINOPRIL [Concomitant]
  8. ASPIRIN [Concomitant]
     Dosage: 300MG PER DAY

REACTIONS (12)
  - ANAEMIA [None]
  - DIARRHOEA [None]
  - DIZZINESS [None]
  - DYSPNOEA [None]
  - LOBAR PNEUMONIA [None]
  - LOWER RESPIRATORY TRACT INFECTION [None]
  - LYMPHOPENIA [None]
  - NEUTROPENIA [None]
  - PRODUCTIVE COUGH [None]
  - PYREXIA [None]
  - THROMBOCYTOPENIA [None]
  - THROMBOPHLEBITIS [None]
